FAERS Safety Report 14918714 (Version 5)
Quarter: 2019Q4

REPORT INFORMATION
  Report Type: Spontaneous
  Country: US (occurrence: US)
  Receive Date: 20180521
  Receipt Date: 20191121
  Transmission Date: 20200122
  Serious: No
  Sender: FDA-Public Use
  Company Number: US-PFIZER INC-2018203195

PATIENT
  Age: 51 Year
  Sex: Female

DRUGS (2)
  1. XELJANZ XR [Interacting]
     Active Substance: TOFACITINIB CITRATE
     Dosage: 11 MG, UNK
     Dates: start: 20190516
  2. XELJANZ XR [Suspect]
     Active Substance: TOFACITINIB CITRATE
     Indication: ALOPECIA
     Dosage: 11 MG, ALTERNATE DAY (24 HOUR EVERY OTHER DAY)
     Route: 048

REACTIONS (11)
  - Drug ineffective [Unknown]
  - Burning sensation [Unknown]
  - Hypoaesthesia [Unknown]
  - Fatigue [Unknown]
  - Drug effective for unapproved indication [Unknown]
  - Labelled drug-food interaction medication error [Unknown]
  - Off label use [Unknown]
  - Night sweats [Unknown]
  - Dry eye [Unknown]
  - Pain in extremity [Unknown]
  - Paraesthesia [Unknown]
